FAERS Safety Report 6368459-0 (Version None)
Quarter: 2009Q3

REPORT INFORMATION
  Report Type: 
  Country: None (occurrence: None)
  Receive Date: 20090917
  Receipt Date: 20090615
  Transmission Date: 20100115
  Serious: Yes (Hospitalization)
  Sender: FDA-Public Use
  Company Number: US-2009-00164

PATIENT
  Age: 47 Year
  Sex: Female
  Weight: 60.3284 kg

DRUGS (2)
  1. SERTRALINE HYDROCHLORIDE [Suspect]
     Dosage: ON SERTRALINE FOR ABOUT 10 YEARS;DOES NOT KNOW WHEN SHE WAS SWITCHED TO LUPIN'S
     Dates: end: 20090612
  2. AMOXICILLIN [Concomitant]

REACTIONS (1)
  - SEROTONIN SYNDROME [None]
